FAERS Safety Report 5786750-3 (Version None)
Quarter: 2008Q2

REPORT INFORMATION
  Report Type: 
  Country: None (occurrence: None)
  Receive Date: 20080618
  Receipt Date: 20080604
  Transmission Date: 20081010
  Serious: Yes (Hospitalization)
  Sender: FDA-Public Use
  Company Number: 8031157

PATIENT
  Age: 86 Year
  Sex: Male

DRUGS (8)
  1. PREDNISOLONE [Suspect]
  2. ASPIRIN [Suspect]
  3. ATENOLOL [Suspect]
  4. UNSPECIFIED AQUEOUS CREAM [Suspect]
  5. BENDROFLUMETHIAZIDE [Suspect]
  6. CHLORPHENIRAMINE MALEATE [Suspect]
  7. DIGOXIN [Suspect]
  8. URSODIOL [Suspect]

REACTIONS (1)
  - JAUNDICE [None]
